FAERS Safety Report 19165623 (Version 1)
Quarter: 2021Q2

REPORT INFORMATION
  Report Type: Spontaneous
  Country: US (occurrence: US)
  Receive Date: 20210421
  Receipt Date: 20210421
  Transmission Date: 20210717
  Serious: No
  Sender: FDA-Public Use
  Company Number: US-ZOGENIX INTERNATIONAL LIMITED, A WHOLLY OWNED SUBSIDIARY OF ZOGENIX, INC.-2021ZX000020

PATIENT
  Age: 6 Year
  Sex: Female
  Weight: 19.07 kg

DRUGS (1)
  1. FINTEPLA [Suspect]
     Active Substance: FENFLURAMINE
     Indication: PRODUCT USED FOR UNKNOWN INDICATION
     Route: 048
     Dates: start: 20201222

REACTIONS (6)
  - Anal incontinence [Unknown]
  - Headache [Unknown]
  - Pain in extremity [Unknown]
  - Rash [Unknown]
  - Seizure [Unknown]
  - Urinary incontinence [Unknown]

NARRATIVE: CASE EVENT DATE: 202012
